FAERS Safety Report 21577864 (Version 3)
Quarter: 2023Q1

REPORT INFORMATION
  Report Type: Other
  Country: GB (occurrence: None)
  Receive Date: 20221110
  Receipt Date: 20230111
  Transmission Date: 20230417
  Serious: Yes (Death)
  Sender: FDA-Public Use
  Company Number: GB-ROCHE-3127552

PATIENT
  Age: 62 Year
  Sex: Female

DRUGS (11)
  1. TRASTUZUMAB [Suspect]
     Active Substance: TRASTUZUMAB
     Indication: Breast cancer metastatic
     Dosage: SUBSEQUENT DOSE (483 MG, EVERY 3 WEEKS) OF TRASTUZUMAB ON 28/MAY/2015. UNKNOWN DOSE (THREE TIMES A D
     Route: 041
     Dates: start: 20150507, end: 20150507
  2. PERTUZUMAB [Suspect]
     Active Substance: PERTUZUMAB
     Indication: Breast cancer metastatic
     Dosage: SUBSEQUENT DOSE ON 420 MG (EVERY THREE WEEK) OF PERTUJUMAB ON 28/MAY/2015
     Route: 042
     Dates: start: 20150506
  3. ADO-TRASTUZUMAB EMTANSINE [Suspect]
     Active Substance: ADO-TRASTUZUMAB EMTANSINE
     Indication: Breast cancer metastatic
     Route: 042
     Dates: start: 20161215, end: 20170608
  4. FULVESTRANT [Suspect]
     Active Substance: FULVESTRANT
     Indication: Breast cancer metastatic
     Route: 030
     Dates: start: 20180725, end: 20190109
  5. DOCETAXEL [Suspect]
     Active Substance: DOCETAXEL
     Indication: Breast cancer metastatic
     Route: 042
     Dates: start: 20150507, end: 20150520
  6. ERIBULIN MESYLATE [Suspect]
     Active Substance: ERIBULIN MESYLATE
     Indication: Breast cancer metastatic
     Dosage: DAY 1 AND 8 OF 3 WEEKLY CYCLE
     Route: 042
     Dates: start: 20171024, end: 20180614
  7. EPILIM [Concomitant]
     Active Substance: VALPROATE SODIUM
     Route: 048
     Dates: start: 20150322
  8. DEXAMETHASONE [Concomitant]
     Active Substance: DEXAMETHASONE
     Indication: Metastases to central nervous system
     Route: 048
     Dates: start: 20150322
  9. FUROSEMIDE [Concomitant]
     Active Substance: FUROSEMIDE
     Route: 048
  10. HYDROCORTISONE [Concomitant]
     Active Substance: HYDROCORTISONE
     Route: 048
  11. DALTEPARIN [Concomitant]
     Active Substance: DALTEPARIN
     Route: 058
     Dates: start: 20160427, end: 20160505

REACTIONS (1)
  - Death [Fatal]

NARRATIVE: CASE EVENT DATE: 20190522
